FAERS Safety Report 5988213-9 (Version None)
Quarter: 2008Q4

REPORT INFORMATION
  Report Type: 
  Country: None (occurrence: None)
  Receive Date: 20081204
  Receipt Date: 20081119
  Transmission Date: 20090506
  Serious: Yes (Death)
  Sender: FDA-Public Use
  Company Number: 08-193

PATIENT
  Sex: Male
  Weight: 83.4619 kg

DRUGS (5)
  1. FAZACLO ODT [Suspect]
     Indication: SCHIZOPHRENIA
     Dosage: 200 MG PO BID
     Route: 048
     Dates: start: 20070125, end: 20080205
  2. COGENTIN [Concomitant]
  3. TRILEPTAL [Concomitant]
  4. LORAZEPAM [Concomitant]
  5. DEPAKOTE [Concomitant]

REACTIONS (2)
  - DYSPNOEA [None]
  - INTESTINAL OBSTRUCTION [None]
